FAERS Safety Report 4343346-8 (Version None)
Quarter: 2004Q1

REPORT INFORMATION
  Report Type: 
  Country: None (occurrence: None)
  Receive Date: 20040325
  Receipt Date: 20040219
  Transmission Date: 20041129
  Serious: No
  Sender: FDA-Public Use
  Company Number: USA040259923

PATIENT
  Age: 76 Year
  Sex: Female

DRUGS (4)
  1. FORTEO [Suspect]
     Dates: start: 20031203
  2. TOPROL-XL [Concomitant]
  3. NORVASC [Concomitant]
  4. RESTORIL [Concomitant]

REACTIONS (2)
  - DYSGEUSIA [None]
  - HALITOSIS [None]
